FAERS Safety Report 19006556 (Version 1)
Quarter: 2021Q1

REPORT INFORMATION
  Report Type: Spontaneous
  Country: DE (occurrence: DE)
  Receive Date: 20210315
  Receipt Date: 20210315
  Transmission Date: 20210420
  Serious: Yes (Hospitalization)
  Sender: FDA-Public Use
  Company Number: DE-BAUSCH-BL-2021-008065

PATIENT
  Age: 14 Year
  Sex: Male
  Weight: 80 kg

DRUGS (5)
  1. IBUPROFEN. [Suspect]
     Active Substance: IBUPROFEN
     Indication: PAIN IN EXTREMITY
     Dosage: DAILY DOSE: 3600 MG MILLGRAM(S) EVERY DAYS 6 SEPARATED DOSES
     Route: 048
     Dates: end: 20190111
  2. FERRO SANOL [Suspect]
     Active Substance: FERROUS GLYCINE SULFATE
     Indication: PAIN IN EXTREMITY
     Dosage: DAILY DOSE: 1000 MG MILLGRAM(S) EVERY DAYS 10 SEPARATED DOSES
     Route: 048
     Dates: end: 20190111
  3. PANTOPRAZOLE [Suspect]
     Active Substance: PANTOPRAZOLE
     Indication: PAIN IN EXTREMITY
     Dosage: DAILY DOSE: 160 MG MILLGRAM(S) EVERY DAYS 4 SEPARATED DOSES
     Route: 048
     Dates: end: 20190111
  4. DICLOFENAC [Suspect]
     Active Substance: DICLOFENAC
     Indication: PAIN IN EXTREMITY
     Dosage: DAILY DOSE: 375 MG MILLGRAM(S) EVERY DAYS 5 SEPARATED DOSES
     Route: 048
     Dates: end: 20190111
  5. PREDNISOLONE. [Suspect]
     Active Substance: PREDNISOLONE
     Indication: PAIN IN EXTREMITY
     Dosage: MIND. 20MG
     Route: 048
     Dates: end: 20190111

REACTIONS (6)
  - Abdominal pain upper [Recovering/Resolving]
  - Chest pain [Recovering/Resolving]
  - Substance abuse [Recovering/Resolving]
  - Vomiting [Recovering/Resolving]
  - Overdose [Recovering/Resolving]
  - Toxicity to various agents [Recovering/Resolving]

NARRATIVE: CASE EVENT DATE: 20190111
